FAERS Safety Report 20219583 (Version 2)
Quarter: 2022Q1

REPORT INFORMATION
  Report Type: Report from Study
  Country: NL (occurrence: NL)
  Receive Date: 20211222
  Receipt Date: 20220128
  Transmission Date: 20220423
  Serious: Yes (Life-Threatening)
  Sender: FDA-Public Use
  Company Number: NL-TEVA-2021-NL-1989544

PATIENT
  Age: 49 Year
  Sex: Female

DRUGS (4)
  1. PACLITAXEL [Suspect]
     Active Substance: PACLITAXEL
     Indication: Cervix carcinoma
     Dosage: ABSOLUTE DOSE OF 300MG
     Route: 050
  2. RANITIDINE [Suspect]
     Active Substance: RANITIDINE
     Indication: Premedication
     Route: 041
  3. DEXAMETHASONE [Concomitant]
     Active Substance: DEXAMETHASONE
     Indication: Premedication
     Route: 042
  4. CLEMASTINE [Concomitant]
     Active Substance: CLEMASTINE
     Indication: Premedication
     Route: 042

REACTIONS (6)
  - Drug hypersensitivity [Unknown]
  - Dyspnoea [Unknown]
  - Cyanosis [Unknown]
  - Back pain [Unknown]
  - Myalgia [Unknown]
  - Urticaria [Unknown]
